FAERS Safety Report 14376613 (Version 2)
Quarter: 2018Q3

REPORT INFORMATION
  Report Type: Spontaneous
  Country: US (occurrence: US)
  Receive Date: 20180111
  Receipt Date: 20180810
  Transmission Date: 20181010
  Serious: Yes (Hospitalization, Other)
  Sender: FDA-Public Use
  Company Number: US-PFIZER INC-2018013806

PATIENT
  Age: 55 Year
  Sex: Female
  Weight: 50.8 kg

DRUGS (5)
  1. LYRICA [Suspect]
     Active Substance: PREGABALIN
     Indication: SPINAL COLUMN STENOSIS
  2. LYRICA [Suspect]
     Active Substance: PREGABALIN
     Indication: FIBROMYALGIA
  3. LYRICA [Suspect]
     Active Substance: PREGABALIN
     Indication: INTERVERTEBRAL DISC PROTRUSION
  4. LYRICA [Suspect]
     Active Substance: PREGABALIN
     Indication: ARTHRITIS
  5. LYRICA [Suspect]
     Active Substance: PREGABALIN
     Indication: PAIN
     Dosage: 300 MG, 2X/DAY
     Route: 048
     Dates: start: 20170908

REACTIONS (5)
  - Cough [Not Recovered/Not Resolved]
  - Expired product administered [Not Recovered/Not Resolved]
  - Chest injury [Not Recovered/Not Resolved]
  - Pain [Not Recovered/Not Resolved]
  - Pneumonia [Not Recovered/Not Resolved]

NARRATIVE: CASE EVENT DATE: 201712
